FAERS Safety Report 8128126-X (Version None)
Quarter: 2012Q1

REPORT INFORMATION
  Report Type: 
  Country: None (occurrence: None)
  Receive Date: 20120210
  Receipt Date: 20120203
  Transmission Date: 20120608
  Serious: Yes (Hospitalization)
  Sender: FDA-Public Use
  Company Number: FR-JNJFOC-20120204091

PATIENT
  Sex: Female

DRUGS (3)
  1. DURAGESIC-100 [Suspect]
     Indication: PRODUCT USED FOR UNKNOWN INDICATION
     Route: 062
     Dates: start: 20111226, end: 20120104
  2. PAROXETINE HYDROCHLORIDE [Concomitant]
     Route: 065
  3. LEXOMIL [Concomitant]
     Route: 065

REACTIONS (2)
  - CONFUSIONAL STATE [None]
  - ABNORMAL BEHAVIOUR [None]
